FAERS Safety Report 9480016 (Version 1)
Quarter: 2013Q3

REPORT INFORMATION
  Report Type: Spontaneous
  Country: US (occurrence: US)
  Receive Date: 20130828
  Receipt Date: 20130828
  Transmission Date: 20140515
  Serious: Yes (Hospitalization)
  Sender: FDA-Public Use
  Company Number: US-AMGEN-KDL054039

PATIENT
  Age: 61 Year
  Sex: Male

DRUGS (4)
  1. ENBREL [Suspect]
     Indication: RHEUMATOID ARTHRITIS
     Dosage: UNK UNK, 2 TIMES/WK
     Route: 058
     Dates: start: 200009
  2. INDOMETHACIN [Concomitant]
     Dosage: UNK UNK, UNK
     Dates: end: 200211
  3. ROFECOXIB [Concomitant]
  4. METHOTREXATE [Concomitant]
     Dosage: 10 MG, QWK
     Route: 048
     Dates: start: 1996

REACTIONS (6)
  - Abdominal pain [Unknown]
  - Hepatic failure [Unknown]
  - Renal failure [Unknown]
  - Cholecystitis infective [Unknown]
  - Gallbladder operation [Unknown]
  - Hepatic enzyme increased [Unknown]
